FAERS Safety Report 17263430 (Version 2)
Quarter: 2020Q1

REPORT INFORMATION
  Report Type: Spontaneous
  Country: IT (occurrence: IT)
  Receive Date: 20200113
  Receipt Date: 20200120
  Transmission Date: 20200409
  Serious: Yes (Other)
  Sender: FDA-Public Use
  Company Number: IT-MYLANLABS-2020M1003219

PATIENT
  Age: 77 Year
  Sex: Male

DRUGS (7)
  1. VALIUM [Concomitant]
     Active Substance: DIAZEPAM
     Dosage: UNK
  2. PACLITAXEL. [Suspect]
     Active Substance: PACLITAXEL
     Indication: OESOPHAGEAL NEOPLASM
     Dosage: UNK
     Route: 042
     Dates: start: 20190906
  3. CARDICOR [Concomitant]
     Active Substance: BISOPROLOL
     Dosage: UNK
  4. BLOPRESID [Concomitant]
     Active Substance: CANDESARTAN CILEXETIL\HYDROCHLOROTHIAZIDE
     Dosage: UNK
  5. NORVASC [Concomitant]
     Active Substance: AMLODIPINE BESYLATE
     Dosage: UNK
  6. TORVAST [Concomitant]
     Active Substance: ATORVASTATIN
     Dosage: UNK
  7. ZANTAC [Concomitant]
     Active Substance: RANITIDINE HYDROCHLORIDE
     Dosage: UNK

REACTIONS (9)
  - Headache [Unknown]
  - Constipation [Unknown]
  - Aphthous ulcer [Unknown]
  - Bone pain [Unknown]
  - Nausea [Unknown]
  - Neutropenia [Unknown]
  - Pain in extremity [Unknown]
  - Diarrhoea [Unknown]
  - Salivary hypersecretion [Unknown]
